FAERS Safety Report 8499863-2 (Version None)
Quarter: 2012Q3

REPORT INFORMATION
  Report Type: 
  Country: None (occurrence: None)
  Receive Date: 20120710
  Receipt Date: 20120706
  Transmission Date: 20120928
  Serious: Yes (Other)
  Sender: FDA-Public Use
  Company Number: US-PFIZER INC-2012162716

PATIENT
  Sex: Female
  Weight: 74.83 kg

DRUGS (4)
  1. CADUET [Suspect]
     Indication: HYPERTENSION
     Dosage: UNK
  2. ASCORBIC ACID [Concomitant]
     Dosage: 500 IU, DAILY
  3. MULTI-VITAMINS [Concomitant]
     Dosage: UNK
  4. CADUET [Suspect]
     Dosage: 10 MG/ 80 MG, DAILY
     Dates: end: 20120101

REACTIONS (7)
  - HEART RATE INCREASED [None]
  - MALAISE [None]
  - PALPITATIONS [None]
  - EMOTIONAL DISORDER [None]
  - DRUG INEFFECTIVE [None]
  - HYPERVENTILATION [None]
  - ARRHYTHMIA [None]
